FAERS Safety Report 8433789-5 (Version None)
Quarter: 2012Q2

REPORT INFORMATION
  Report Type: 
  Country: None (occurrence: None)
  Receive Date: 20120613
  Receipt Date: 20120531
  Transmission Date: 20120825
  Serious: Yes (Hospitalization)
  Sender: FDA-Public Use
  Company Number: JP-FRI-1000031155

PATIENT
  Age: 20 Year
  Sex: Female
  Weight: 50 kg

DRUGS (4)
  1. ESCITALOPRAM [Suspect]
     Indication: DEPRESSION
     Dosage: REPORTED AS ^ONE SHEET OF ALL PRESCRIBED MEDICATIONS^
     Route: 048
     Dates: start: 20120213, end: 20120410
  2. ZOLPIDEM [Concomitant]
     Dosage: REPORTED AS ^ONE SHEET OF ALL PRESCRIBED MEDICATIONS^
     Route: 048
     Dates: start: 20120227, end: 20120410
  3. ROHYPNOL [Concomitant]
     Dosage: REPORTED AS ^ONE SHEET OF ALL PRESCRIBED MEDICATIONS^
     Route: 048
     Dates: start: 20120223, end: 20120410
  4. RIZE [Concomitant]
     Dosage: REPORTED AS ^ONE SHEET OF ALL PRESCRIBED MEDICATIONS^
     Route: 048
     Dates: start: 20120223, end: 20120410

REACTIONS (3)
  - TOXICITY TO VARIOUS AGENTS [None]
  - ALTERED STATE OF CONSCIOUSNESS [None]
  - OVERDOSE [None]
